FAERS Safety Report 8153922-2 (Version None)
Quarter: 2012Q1

REPORT INFORMATION
  Report Type: 
  Country: None (occurrence: None)
  Receive Date: 20120221
  Receipt Date: 20120214
  Transmission Date: 20120608
  Serious: Yes (Other)
  Sender: FDA-Public Use
  Company Number: US-ROCHE-792771

PATIENT
  Sex: Male
  Weight: 65.83 kg

DRUGS (4)
  1. RITALIN [Concomitant]
  2. ACCUTANE [Suspect]
     Route: 065
     Dates: start: 19960101, end: 19970101
  3. CELEBREX [Concomitant]
  4. ACCUTANE [Suspect]
     Indication: ACNE
     Route: 065
     Dates: start: 19850101, end: 19870101

REACTIONS (5)
  - IRRITABLE BOWEL SYNDROME [None]
  - COLITIS ULCERATIVE [None]
  - SPINAL DISORDER [None]
  - ATTENTION DEFICIT/HYPERACTIVITY DISORDER [None]
  - INFLAMMATORY BOWEL DISEASE [None]
